FAERS Safety Report 7325395-0 (Version None)
Quarter: 2011Q1

REPORT INFORMATION
  Report Type: 
  Country: None (occurrence: None)
  Receive Date: 20110218
  Receipt Date: 20110208
  Transmission Date: 20110831
  Serious: Yes (Life-Threatening, Hospitalization)
  Sender: FDA-Public Use
  Company Number: 2011MA001322

PATIENT
  Age: 74 Year
  Sex: Male

DRUGS (11)
  1. MEROPENEM [Suspect]
     Dosage: 500 MG; ; IV
     Route: 042
     Dates: start: 20110125, end: 20110125
  2. CANDESARTAN CILEXETIL [Concomitant]
  3. CLARITHROMYCIN [Concomitant]
  4. ACETYLSALICYLIC ACID [Concomitant]
  5. SERTRALINE HYDROCHLORIDE [Suspect]
     Indication: DEPRESSION
     Dosage: ; PO
     Route: 048
     Dates: start: 20101201, end: 20110125
  6. ATORVASTATIN [Concomitant]
  7. BISOPROLOL FUMARATE [Concomitant]
  8. ISOSORBIDE MONONITRATE [Concomitant]
  9. METRONIDAZOLE [Suspect]
     Dosage: 500 MG; ; IV
     Route: 042
     Dates: start: 20110125, end: 20110125
  10. NICORANDIL [Concomitant]
  11. FELODIPINE [Concomitant]

REACTIONS (9)
  - JAUNDICE [None]
  - ALANINE AMINOTRANSFERASE INCREASED [None]
  - RENAL FAILURE ACUTE [None]
  - MULTI-ORGAN FAILURE [None]
  - DYSPNOEA [None]
  - CONFUSIONAL STATE [None]
  - HEPATOMEGALY [None]
  - SEPSIS [None]
  - ACUTE HEPATIC FAILURE [None]
